FAERS Safety Report 6613557-7 (Version None)
Quarter: 2010Q1

REPORT INFORMATION
  Report Type: 
  Country: None (occurrence: None)
  Receive Date: 20100225
  Receipt Date: 20100215
  Transmission Date: 20100710
  Serious: Yes (Other)
  Sender: FDA-Public Use
  Company Number: DEU-2010-00094

PATIENT
  Age: 78 Year
  Sex: Female
  Weight: 50.8029 kg

DRUGS (1)
  1. BENICAR [Suspect]
     Indication: HYPERTENSION
     Dosage: 5 MG (5 MG, 1/4 OF 20MG TABLET QD), PER ORAL
     Route: 048
     Dates: start: 20100108, end: 20100109

REACTIONS (4)
  - BLOOD PRESSURE INCREASED [None]
  - CHEST PAIN [None]
  - DRUG TOLERANCE DECREASED [None]
  - INCORRECT DOSE ADMINISTERED [None]
